FAERS Safety Report 8460153-5 (Version None)
Quarter: 2012Q2

REPORT INFORMATION
  Report Type: 
  Country: None (occurrence: None)
  Receive Date: 20120622
  Receipt Date: 20120613
  Transmission Date: 20120825
  Serious: Yes (Hospitalization, Other)
  Sender: FDA-Public Use
  Company Number: US-ASTRAZENECA-2010SE44838

PATIENT
  Age: 77 Year
  Sex: Female

DRUGS (2)
  1. MULTAQ [Concomitant]
  2. NEXIUM [Suspect]
     Route: 048

REACTIONS (6)
  - PNEUMONIA [None]
  - HEART RATE IRREGULAR [None]
  - ATRIAL FIBRILLATION [None]
  - CARDIAC DISORDER [None]
  - URINARY TRACT INFECTION [None]
  - MALAISE [None]
